FAERS Safety Report 19969161 (Version 1)
Quarter: 2021Q4

REPORT INFORMATION
  Report Type: Spontaneous
  Country: US (occurrence: US)
  Receive Date: 20211019
  Receipt Date: 20211019
  Transmission Date: 20220303
  Serious: No
  Sender: FDA-Public Use
  Company Number: None

PATIENT
  Age: 42 Year
  Sex: Female
  Weight: 65.25 kg

DRUGS (5)
  1. CLONAZEPAM [Suspect]
     Active Substance: CLONAZEPAM
     Indication: Insomnia
     Dosage: ?          QUANTITY:1 TABLET(S);
     Route: 048
  2. CLONAZEPAM [Suspect]
     Active Substance: CLONAZEPAM
     Indication: Anxiety
  3. LEVOTHYROXINE [Concomitant]
     Active Substance: LEVOTHYROXINE
  4. HYDROXYZINE PAMOATE [Concomitant]
     Active Substance: HYDROXYZINE PAMOATE
  5. FLUVOXEMINE [Concomitant]

REACTIONS (10)
  - Withdrawal syndrome [None]
  - Insomnia [None]
  - Neuralgia [None]
  - Suicidal ideation [None]
  - Depression [None]
  - Restlessness [None]
  - Post-traumatic stress disorder [None]
  - Cognitive disorder [None]
  - Memory impairment [None]
  - Muscle spasms [None]

NARRATIVE: CASE EVENT DATE: 20210122
